FAERS Safety Report 5815518-4 (Version None)
Quarter: 2008Q3

REPORT INFORMATION
  Report Type: 
  Country: None (occurrence: None)
  Receive Date: 20080718
  Receipt Date: 20080708
  Transmission Date: 20090109
  Serious: Yes (Other)
  Sender: FDA-Public Use
  Company Number: US-PFIZER INC-2008057606

PATIENT
  Sex: Female
  Weight: 88.636 kg

DRUGS (9)
  1. CHANTIX [Suspect]
     Indication: EX-TOBACCO USER
     Dates: start: 20080429, end: 20080530
  2. EZETIMIBE [Concomitant]
  3. METFORMIN HCL [Concomitant]
  4. MULTI-VITAMINS [Concomitant]
  5. METOPROLOL TARTRATE [Concomitant]
  6. OMEPRAZOLE [Concomitant]
  7. POTASSIUM CHLORIDE [Concomitant]
  8. ALPRAZOLAM [Concomitant]
  9. TRIAMTERENE AND HYDROCHLOROTHIAZID ^HARRIS^ [Concomitant]

REACTIONS (7)
  - BLOOD GLUCOSE INCREASED [None]
  - BURNING SENSATION [None]
  - DIZZINESS [None]
  - DRUG ADMINISTRATION ERROR [None]
  - FEELING HOT [None]
  - HEADACHE [None]
  - PAIN IN EXTREMITY [None]
